FAERS Safety Report 11093126 (Version 1)
Quarter: 2015Q2

REPORT INFORMATION
  Report Type: Spontaneous
  Country: EC (occurrence: EC)
  Receive Date: 20150506
  Receipt Date: 20150506
  Transmission Date: 20150821
  Serious: Yes (Other)
  Sender: FDA-Public Use
  Company Number: EC-PFIZER INC-2015147387

PATIENT
  Age: 63 Year
  Sex: Male

DRUGS (1)
  1. CARDURA [Suspect]
     Active Substance: DOXAZOSIN MESYLATE
     Dosage: 2 MG, 1X/DAY

REACTIONS (1)
  - Prostatic disorder [Unknown]

NARRATIVE: CASE EVENT DATE: 201411
